FAERS Safety Report 20895467 (Version 1)
Quarter: 2022Q2

REPORT INFORMATION
  Report Type: Spontaneous
  Country: US (occurrence: None)
  Receive Date: 20220531
  Receipt Date: 20220531
  Transmission Date: 20220720
  Serious: Yes (Hospitalization)
  Sender: FDA-Public Use
  Company Number: None

PATIENT
  Sex: Male

DRUGS (1)
  1. CAPECITABINE [Suspect]
     Active Substance: CAPECITABINE
     Indication: Rectal cancer
     Dosage: TAKE 4 TABLETS BY MOUTH TWICE DAILY MONDAY THROUGH FRIDAY ON RADIATION DAYS?
     Route: 048
     Dates: start: 20220422

REACTIONS (1)
  - Hospitalisation [None]
